FAERS Safety Report 11825186 (Version 11)
Quarter: 2017Q3

REPORT INFORMATION
  Report Type: Spontaneous
  Country: CA (occurrence: CA)
  Receive Date: 20151211
  Receipt Date: 20170907
  Transmission Date: 20171127
  Serious: Yes (Life-Threatening, Hospitalization, Other)
  Sender: FDA-Public Use
  Company Number: CA-ROCHE-1675591

PATIENT
  Age: 68 Year
  Sex: Female

DRUGS (6)
  1. XOLAIR [Suspect]
     Active Substance: OMALIZUMAB
     Indication: ASTHMA
     Route: 058
     Dates: start: 20150114
  2. XOLAIR [Suspect]
     Active Substance: OMALIZUMAB
     Route: 058
     Dates: start: 20170314
  3. XOLAIR [Suspect]
     Active Substance: OMALIZUMAB
     Route: 058
     Dates: start: 20170801
  4. XOLAIR [Suspect]
     Active Substance: OMALIZUMAB
     Route: 058
     Dates: start: 20160210
  5. XOLAIR [Suspect]
     Active Substance: OMALIZUMAB
     Route: 058
     Dates: start: 20170828
  6. XOLAIR [Suspect]
     Active Substance: OMALIZUMAB
     Route: 058
     Dates: start: 20170119

REACTIONS (25)
  - Fistula [Unknown]
  - Chest discomfort [Recovering/Resolving]
  - Device malfunction [Unknown]
  - Temperature intolerance [Unknown]
  - Abdominal wall wound [Recovering/Resolving]
  - Incision site abscess [Recovering/Resolving]
  - Anaemia [Unknown]
  - Dyspnoea exertional [Unknown]
  - Post procedural complication [Unknown]
  - Restrictive pulmonary disease [Unknown]
  - Respiratory disorder [Unknown]
  - Post procedural infection [Recovering/Resolving]
  - Asthma [Unknown]
  - Cough [Unknown]
  - Infected skin ulcer [Recovering/Resolving]
  - Urinary tract infection [Unknown]
  - Carbon monoxide diffusing capacity decreased [Unknown]
  - Blood pressure systolic increased [Unknown]
  - Fall [Unknown]
  - Blood immunoglobulin G decreased [Unknown]
  - Eczema [Recovering/Resolving]
  - Abdominal infection [Not Recovered/Not Resolved]
  - Humidity intolerance [Unknown]
  - Malaise [Unknown]
  - Gait disturbance [Unknown]

NARRATIVE: CASE EVENT DATE: 20150731
